FAERS Safety Report 4995779-4 (Version None)
Quarter: 2006Q2

REPORT INFORMATION
  Report Type: 
  Country: None (occurrence: None)
  Receive Date: 20060508
  Receipt Date: 20060417
  Transmission Date: 20061013
  Serious: Yes (Hospitalization)
  Sender: FDA-Public Use
  Company Number: JP-BOEHRINGER INGELHEIM PHARMACEUTICALS, INC.-2006-BP-04308NB

PATIENT
  Sex: Female

DRUGS (4)
  1. BI-SIFROL TABLETS [Suspect]
     Indication: PARKINSON'S DISEASE
     Route: 048
     Dates: start: 20041013
  2. EC-DOPARL (LEVODOPA_BENSERAZIDE HYDROCHLORIDE) [Concomitant]
     Indication: PARKINSON'S DISEASE
     Route: 048
     Dates: start: 20031210, end: 20050623
  3. MUCOSTA [Concomitant]
     Route: 048
     Dates: start: 19970930
  4. PERMAX [Concomitant]
     Indication: PARKINSON'S DISEASE
     Route: 048
     Dates: start: 20040916, end: 20050623

REACTIONS (3)
  - DELIRIUM [None]
  - NOCTURIA [None]
  - PNEUMONIA [None]
